FAERS Safety Report 6625667-9 (Version None)
Quarter: 2010Q1

REPORT INFORMATION
  Report Type: 
  Country: None (occurrence: None)
  Receive Date: 20100310
  Receipt Date: 20100303
  Transmission Date: 20100710
  Serious: Yes (Hospitalization)
  Sender: FDA-Public Use
  Company Number: FR-BRISTOL-MYERS SQUIBB COMPANY-14999809

PATIENT
  Age: 74 Year
  Sex: Female

DRUGS (7)
  1. COAPROVEL TABS 300MG/ 25MG [Suspect]
     Indication: HYPERTENSION
     Dosage: 1 DF= 300/25MG
     Route: 048
  2. VISIPAQUE [Interacting]
     Indication: ARTERITIS OBLITERANS
     Route: 013
     Dates: start: 20100216
  3. PLAVIX [Concomitant]
  4. LOVENOX [Concomitant]
  5. ZANIDIP [Concomitant]
  6. PYOSTACINE [Concomitant]
  7. NOVOMIX [Concomitant]

REACTIONS (2)
  - DRUG INTERACTION [None]
  - RENAL FAILURE ACUTE [None]
